FAERS Safety Report 8129304-6 (Version None)
Quarter: 2012Q1

REPORT INFORMATION
  Report Type: 
  Country: None (occurrence: None)
  Receive Date: 20120210
  Receipt Date: 20120202
  Transmission Date: 20120608
  Serious: Yes (Other)
  Sender: FDA-Public Use
  Company Number: PHHY2012JP008940

PATIENT
  Age: 64 Year
  Sex: Female
  Weight: 42.2 kg

DRUGS (5)
  1. CISPLATIN [Suspect]
     Dosage: 70 MG/M2, ONCE/SINGLE
  2. RADIOTHERAPY [Concomitant]
     Indication: OESOPHAGEAL CARCINOMA
     Dosage: 2 GY/FR X 30 = 60 GY
  3. FLUOROURACIL [Suspect]
     Dosage: 700 MG/M2, ONCE/SINGLE
  4. FLUOROURACIL [Suspect]
     Indication: OESOPHAGEAL CARCINOMA
     Dosage: 700 MG/M2, ONCE/SINGLE
  5. CISPLATIN [Suspect]
     Indication: OESOPHAGEAL CARCINOMA
     Dosage: 70 MG/M2, ONCE/SINGLE

REACTIONS (6)
  - OESOPHAGEAL FISTULA [None]
  - INFLAMMATION [None]
  - OESOPHAGEAL PERFORATION [None]
  - LEUKOCYTOSIS [None]
  - PYREXIA [None]
  - MEDIASTINAL ABSCESS [None]
